FAERS Safety Report 6393770-7 (Version None)
Quarter: 2009Q4

REPORT INFORMATION
  Report Type: 
  Country: None (occurrence: None)
  Receive Date: 20091008
  Receipt Date: 20090930
  Transmission Date: 20100525
  Serious: Yes (Hospitalization)
  Sender: FDA-Public Use
  Company Number: US-ABBOTT-09P-163-0586790-00

PATIENT
  Sex: Male
  Weight: 92.162 kg

DRUGS (32)
  1. RITONAVIR [Suspect]
     Indication: HIV INFECTION
     Route: 048
     Dates: start: 20060201, end: 20090505
  2. RITONAVIR [Suspect]
     Dates: start: 20090520
  3. TMC114 [Concomitant]
     Indication: HIV INFECTION
     Route: 048
     Dates: start: 20060201, end: 20090505
  4. TMC114 [Concomitant]
     Dates: start: 20090520
  5. TRUVADA [Concomitant]
     Indication: HIV INFECTION
     Dosage: 300/200 MG
     Route: 048
     Dates: start: 20060201, end: 20090505
  6. TRUVADA [Concomitant]
     Dates: start: 20090520
  7. CALCIUM +D [Concomitant]
     Indication: MINERAL SUPPLEMENTATION
     Route: 048
     Dates: start: 20010101
  8. ASCORBIC ACID [Concomitant]
     Indication: VITAMIN SUPPLEMENTATION
     Route: 048
     Dates: start: 20010101, end: 20071215
  9. MULTI-VITAMIN [Concomitant]
     Indication: VITAMIN SUPPLEMENTATION
     Route: 048
     Dates: start: 20010101
  10. VITAMIN E [Concomitant]
     Indication: VITAMIN SUPPLEMENTATION
     Route: 048
     Dates: start: 20010101
  11. IRON [Concomitant]
     Indication: MINERAL SUPPLEMENTATION
     Route: 048
     Dates: start: 20010101
  12. ZINC [Concomitant]
     Indication: MINERAL SUPPLEMENTATION
     Route: 048
     Dates: start: 20010101
  13. CHROMIUM PICOLINATE [Concomitant]
     Indication: MEDICAL DIET
     Route: 048
     Dates: start: 20010101
  14. DOCUSATE SODIUM [Concomitant]
     Indication: MEDICAL DIET
     Route: 048
     Dates: start: 20010101
  15. CARBOHYDRATE INHIBITOR [Concomitant]
     Indication: MEDICAL DIET
     Route: 048
     Dates: start: 20050101
  16. NAPROXEN [Concomitant]
     Indication: ARTHRITIS
     Dosage: 2 PILLS
     Route: 048
     Dates: start: 20030101
  17. RANITIDINE [Concomitant]
     Indication: DYSPEPSIA
     Route: 048
     Dates: start: 20040101
  18. SENNOSIDES [Concomitant]
     Indication: CONSTIPATION
     Dosage: 1 PILL
     Route: 048
     Dates: start: 20010101
  19. IBUPROFEN [Concomitant]
     Indication: ARTHRITIS
     Dosage: 2 PILLS
     Route: 048
     Dates: start: 20030101
  20. DREXARAL [Concomitant]
     Indication: SINUS CONGESTION
     Dosage: 1 PILL
     Route: 048
     Dates: start: 19770101, end: 20090427
  21. DIPHENHYDRAMINE HCL [Concomitant]
     Indication: SINUS CONGESTION
     Route: 048
     Dates: start: 20000101
  22. TYLENOL (CAPLET) [Concomitant]
     Indication: ARTHRITIS
     Dosage: 2 PILLS
     Route: 048
     Dates: start: 20030101
  23. ASPIRIN [Concomitant]
     Indication: ARTHRITIS
     Dosage: 2 PILLS
     Route: 048
     Dates: start: 20030101
  24. MAALOX [Concomitant]
     Indication: NAUSEA
     Route: 048
     Dates: start: 20050601
  25. DRAMAMINE [Concomitant]
     Indication: MOTION SICKNESS
     Dosage: 1 PILL
     Route: 048
     Dates: start: 20050601
  26. FISH OIL [Concomitant]
     Indication: MEDICAL DIET
     Route: 048
     Dates: start: 20070104
  27. OSTEO BI-FLEX [Concomitant]
     Indication: ARTHRITIS
     Route: 048
     Dates: start: 20070903
  28. ME X-CELERATOR [Concomitant]
     Indication: MEDICAL DIET
     Route: 048
     Dates: start: 20050101, end: 20090505
  29. FLU VACCINE [Concomitant]
     Indication: INFLUENZA IMMUNISATION
     Route: 030
     Dates: start: 20080909, end: 20080909
  30. AUGMENTIN [Concomitant]
     Indication: SINUSITIS
     Dosage: 875/12.5 MG
     Route: 048
     Dates: start: 20090428, end: 20090505
  31. METABOLIC ENHANCER [Concomitant]
     Indication: MEDICAL DIET
     Route: 048
     Dates: start: 20050101, end: 20061004
  32. METABOLIC ENHANCER [Concomitant]
     Indication: WEIGHT CONTROL
     Dates: start: 20061130, end: 20090505

REACTIONS (4)
  - CONVULSION [None]
  - DYSPHAGIA [None]
  - SINUS DISORDER [None]
  - SUBCUTANEOUS EMPHYSEMA [None]
